FAERS Safety Report 7743100-0 (Version None)
Quarter: 2011Q3

REPORT INFORMATION
  Report Type: 
  Country: None (occurrence: None)
  Receive Date: 20110912
  Receipt Date: 20110831
  Transmission Date: 20111222
  Serious: Yes (Hospitalization, Other)
  Sender: FDA-Public Use
  Company Number: US-ROCHE-796913

PATIENT
  Age: 77 Year
  Sex: Male

DRUGS (1)
  1. AVASTIN [Suspect]
     Indication: MACULAR DEGENERATION
     Dosage: PATIENT RECEIVED THE BEVACIZUMAB SHOT IN HIS EYE
     Route: 050
     Dates: start: 20110329

REACTIONS (10)
  - PRODUCT QUALITY ISSUE [None]
  - ALPHA HAEMOLYTIC STREPTOCOCCAL INFECTION [None]
  - HAEMORRHAGE [None]
  - BLINDNESS [None]
  - MENINGOENCEPHALITIS BACTERIAL [None]
  - BRAIN INJURY [None]
  - MENTAL IMPAIRMENT [None]
  - PRODUCT CONTAMINATION MICROBIAL [None]
  - INJECTION SITE INFECTION [None]
  - PAIN [None]
